FAERS Safety Report 14328591 (Version 1)
Quarter: 2017Q4

REPORT INFORMATION
  Report Type: Report from Study
  Country: ES (occurrence: ES)
  Receive Date: 20171227
  Receipt Date: 20171227
  Transmission Date: 20180321
  Serious: Yes (Hospitalization)
  Sender: FDA-Public Use
  Company Number: ES-PFIZER INC-2017546254

PATIENT
  Age: 76 Year
  Sex: Female
  Weight: 31 kg

DRUGS (6)
  1. PARACETAMOL [Concomitant]
     Active Substance: ACETAMINOPHEN
     Indication: PAIN
     Dosage: 35 MG, 4X/DAY (35MG/6H)
     Route: 042
     Dates: start: 20170310
  2. VINCRISTINE SULFATE. [Suspect]
     Active Substance: VINCRISTINE SULFATE
     Dosage: 1.5 MG, 1X/DAY
     Route: 042
     Dates: start: 20170315, end: 20170315
  3. NOLOTIL /06276702/ [Concomitant]
     Active Substance: METAMIZOLE MAGNESIUM
     Indication: PAIN
     Dosage: 3 ML, 4X/DAY(3 ML/6H)
     Route: 042
     Dates: start: 20170310
  4. DAUNOBLASTINA [Suspect]
     Active Substance: DAUNORUBICIN
     Indication: ACUTE LYMPHOCYTIC LEUKAEMIA
     Dosage: 31 MG, 1X/DAY
     Route: 042
     Dates: start: 20170315, end: 20170315
  5. RANITIDINE. [Concomitant]
     Active Substance: RANITIDINE
     Indication: PROPHYLAXIS AGAINST GASTROINTESTINAL ULCER
     Dosage: 35 MG, 4X/DAY(35MG/6H)
     Route: 042
     Dates: start: 20170310
  6. METILPREDNISOLONA /00049601/ [Concomitant]
     Active Substance: METHYLPREDNISOLONE
     Dosage: 20 MG, 3X/DAY(20MG/8H)
     Route: 042
     Dates: start: 20170310

REACTIONS (1)
  - Hepatitis acute [Recovered/Resolved]

NARRATIVE: CASE EVENT DATE: 20170317
